FAERS Safety Report 5746024-3 (Version None)
Quarter: 2008Q2

REPORT INFORMATION
  Report Type: 
  Country: None (occurrence: None)
  Receive Date: 20080522
  Receipt Date: 20080520
  Transmission Date: 20081010
  Serious: Yes (Other)
  Sender: FDA-Public Use
  Company Number: BR-BAYER-200810332LA

PATIENT
  Age: 30 Year
  Sex: Female
  Weight: 45 kg

DRUGS (2)
  1. YAZ [Suspect]
     Indication: PREMENSTRUAL SYNDROME
     Route: 048
     Dates: start: 20071125, end: 20071217
  2. RIVOTRIL [Concomitant]
     Indication: PANIC DISORDER
     Route: 048
     Dates: start: 20060101, end: 20070701

REACTIONS (23)
  - ABDOMINAL PAIN UPPER [None]
  - CHEST PAIN [None]
  - COUGH [None]
  - CRYING [None]
  - DEPRESSED MOOD [None]
  - DEPRESSION [None]
  - DYSPHONIA [None]
  - DYSPNOEA [None]
  - FEAR [None]
  - FEAR OF DEATH [None]
  - FEELING ABNORMAL [None]
  - HUNGER [None]
  - HYPOMENORRHOEA [None]
  - ILLUSION [None]
  - MENSTRUATION IRREGULAR [None]
  - MENTAL DISORDER [None]
  - MOOD ALTERED [None]
  - MORBID THOUGHTS [None]
  - NAUSEA [None]
  - NERVOUSNESS [None]
  - STRESS [None]
  - TREMOR [None]
  - WEIGHT DECREASED [None]
